FAERS Safety Report 10428162 (Version 5)
Quarter: 2015Q2

REPORT INFORMATION
  Report Type: Spontaneous
  Country: SE (occurrence: SE)
  Receive Date: 20140903
  Receipt Date: 20150402
  Transmission Date: 20150821
  Serious: Yes (Hospitalization, Other)
  Sender: FDA-Public Use
  Company Number: SE-PFIZER INC-2014241723

PATIENT
  Age: 66 Year
  Sex: Female

DRUGS (1)
  1. ZOLOFT [Suspect]
     Active Substance: SERTRALINE HYDROCHLORIDE
     Dosage: 50 MG, 1X/DAY
     Dates: start: 1995

REACTIONS (7)
  - Wheezing [Recovered/Resolved]
  - Hypertension [Recovered/Resolved]
  - Extrasystoles [Recovered/Resolved]
  - Reaction to drug excipients [Recovered/Resolved]
  - Respiratory distress [Recovered/Resolved]
  - Blood pressure fluctuation [Recovered/Resolved]
  - Chest discomfort [Recovered/Resolved]
